FAERS Safety Report 4989881-0 (Version None)
Quarter: 2006Q2

REPORT INFORMATION
  Report Type: 
  Country: None (occurrence: None)
  Receive Date: 20060428
  Receipt Date: 20060421
  Transmission Date: 20061013
  Serious: Yes (Hospitalization)
  Sender: FDA-Public Use
  Company Number: 2006053659

PATIENT
  Age: 28 Year
  Sex: Female
  Weight: 55 kg

DRUGS (4)
  1. ALPRAZOLAM [Suspect]
     Indication: ANXIETY
     Dosage: 25 MG (25 MG, 1 IN 1 D), ORAL
     Route: 048
     Dates: start: 20041001, end: 20050911
  2. TRAZODONE HCL [Suspect]
     Indication: DEPRESSION
     Dosage: 100 MG (100 MG, 1 IN 1 D), ORAL
     Route: 048
     Dates: start: 20041001, end: 20051111
  3. MELIANE (ETHINYLESTRADIOL, GESTODENE) [Suspect]
     Indication: CONTRACEPTION
     Dosage: (1 IN 1 D), ORAL
     Route: 048
     Dates: start: 20050910, end: 20050911
  4. FAMOTIDINE [Suspect]
     Indication: DYSPEPSIA
     Dosage: 80 MG (40 MG, 2 IN 1 D), ORAL
     Route: 048
     Dates: start: 20051001, end: 20051006

REACTIONS (2)
  - DRUG INTERACTION [None]
  - HEPATITIS [None]
